FAERS Safety Report 21330362 (Version 1)
Quarter: 2022Q3

REPORT INFORMATION
  Report Type: Spontaneous
  Country: PL (occurrence: None)
  Receive Date: 20220913
  Receipt Date: 20220913
  Transmission Date: 20221027
  Serious: Yes (Hospitalization)
  Sender: FDA-Public Use
  Company Number: 2022A315684

PATIENT
  Age: 76 Year
  Sex: Male
  Weight: 82 kg

DRUGS (3)
  1. DAPAGLIFLOZIN [Suspect]
     Active Substance: DAPAGLIFLOZIN
     Indication: Cardiac failure
     Route: 048
     Dates: start: 2019
  2. DAPAGLIFLOZIN [Suspect]
     Active Substance: DAPAGLIFLOZIN
     Indication: Cardiac failure
     Dosage: 10MG 1X1TABL ? TEMPORARILY DISCONTINUED, TO BE INCLUDED ON AN OUTPATIENT BASIS,
     Route: 048
     Dates: start: 2020
  3. DAPAGLIFLOZIN [Suspect]
     Active Substance: DAPAGLIFLOZIN
     Indication: Cardiac failure
     Dosage: 10MG 1X1TABL,
     Route: 048
     Dates: start: 202104

REACTIONS (2)
  - Cardiac failure [Unknown]
  - Urosepsis [Unknown]

NARRATIVE: CASE EVENT DATE: 20220101
